FAERS Safety Report 18954909 (Version 1)
Quarter: 2021Q1

REPORT INFORMATION
  Report Type: Spontaneous
  Country: JP (occurrence: JP)
  Receive Date: 20210301
  Receipt Date: 20210301
  Transmission Date: 20210420
  Serious: Yes (Death, Hospitalization)
  Sender: FDA-Public Use
  Company Number: JP-DSJP-DSJ-2021-102693

PATIENT
  Age: 71 Year
  Sex: Female

DRUGS (7)
  1. AZILVA [Concomitant]
     Active Substance: AZILSARTAN KAMEDOXOMIL
     Dosage: 20 MG, QD
     Route: 048
  2. ENHERTU [Suspect]
     Active Substance: FAM-TRASTUZUMAB DERUXTECAN-NXKI
     Indication: BREAST CANCER
     Dosage: 5.4 MG/KG, ONCE EVERY 3 WK
     Route: 041
     Dates: start: 20201102, end: 20201221
  3. GRANISETRON                        /01178102/ [Concomitant]
     Active Substance: GRANISETRON
     Indication: PROPHYLAXIS OF NAUSEA AND VOMITING
     Dosage: 40 UG/KG, SINGLE
     Route: 041
  4. OLANZAPINE. [Concomitant]
     Active Substance: OLANZAPINE
     Indication: PROPHYLAXIS OF NAUSEA AND VOMITING
     Dosage: 2.5 MG, QD
     Route: 048
  5. ATELEC [Concomitant]
     Active Substance: CILNIDIPINE
     Dosage: 10 MG, QD
     Route: 048
  6. DEXART [Concomitant]
     Active Substance: DEXAMETHASONE SODIUM PHOSPHATE
     Indication: PROPHYLAXIS OF NAUSEA AND VOMITING
     Dosage: 9.9 MG, SINGLE
     Route: 041
  7. NEXIUM [Concomitant]
     Active Substance: ESOMEPRAZOLE MAGNESIUM
     Dosage: 20 MG, QD
     Route: 048

REACTIONS (3)
  - Metastases to liver [Fatal]
  - Pleural effusion [Fatal]
  - Death [Fatal]

NARRATIVE: CASE EVENT DATE: 20210118
